FAERS Safety Report 9179108 (Version 1)
Quarter: 2013Q1

REPORT INFORMATION
  Report Type: Spontaneous
  Country: US (occurrence: US)
  Receive Date: 20130321
  Receipt Date: 20130321
  Transmission Date: 20140127
  Serious: No
  Sender: FDA-Public Use
  Company Number: US-009507513-1303USA008385

PATIENT
  Age: 63 Year
  Sex: Female
  Weight: 71.66 kg

DRUGS (6)
  1. DULERA [Suspect]
     Indication: WHEEZING
     Dosage: 2 PUFF IN THE MORNING, 2 PUFF IN THE EVENING
     Route: 055
     Dates: start: 20130310, end: 20130315
  2. AMOXICILLIN [Concomitant]
     Indication: RESPIRATORY TRACT INFECTION
  3. LEVOTHYROXINE SODIUM [Concomitant]
  4. LOSARTAN POTASSIUM TABLETS [Concomitant]
  5. ATENOLOL [Concomitant]
  6. CALCIUM (UNSPECIFIED) (+) VITAMIN D (UNSPECIFIED) [Concomitant]

REACTIONS (3)
  - Chest discomfort [Not Recovered/Not Resolved]
  - Chest pain [Not Recovered/Not Resolved]
  - Back pain [Not Recovered/Not Resolved]
